FAERS Safety Report 9929213 (Version 3)
Quarter: 2017Q1

REPORT INFORMATION
  Report Type: Other
  Country: CA (occurrence: CA)
  Receive Date: 20140224
  Receipt Date: 20170208
  Transmission Date: 20170429
  Serious: Yes (Hospitalization, Other)
  Sender: FDA-Public Use
  Company Number: CA14-111

PATIENT
  Sex: Male
  Weight: 2.19 kg

DRUGS (10)
  1. DICLEGIS [Suspect]
     Active Substance: DOXYLAMINE SUCCINATE\PYRIDOXINE HYDROCHLORIDE
     Indication: PRODUCT USED FOR UNKNOWN INDICATION
     Route: 064
  2. PAXIL CR [Suspect]
     Active Substance: PAROXETINE HYDROCHLORIDE
     Route: 064
  3. FOLIC ACID. [Suspect]
     Active Substance: FOLIC ACID
     Route: 064
  4. LEUCOVORIN. [Suspect]
     Active Substance: LEUCOVORIN
     Route: 064
  5. NICOTINE. [Suspect]
     Active Substance: NICOTINE
     Route: 064
  6. PRENATAL VITAMIN + MINERAL SUPPLEMENT [Suspect]
     Active Substance: MINERALS\VITAMINS
  7. SUBOXONE [Suspect]
     Active Substance: BUPRENORPHINE HYDROCHLORIDE\NALOXONE HYDROCHLORIDE
     Route: 063
  8. OXYCONTIN [Suspect]
     Active Substance: OXYCODONE HYDROCHLORIDE
     Route: 064
  9. SUBOXONE [Suspect]
     Active Substance: BUPRENORPHINE HYDROCHLORIDE\NALOXONE HYDROCHLORIDE
     Route: 064
  10. SUBUTEX [Suspect]
     Active Substance: BUPRENORPHINE HYDROCHLORIDE
     Route: 064

REACTIONS (6)
  - Neonatal hypoxia [Recovered/Resolved]
  - Tremor neonatal [Recovered/Resolved]
  - Low birth weight baby [Recovered/Resolved]
  - Foetal exposure during pregnancy [None]
  - Exposure during breast feeding [Recovered/Resolved]
  - Premature baby [Recovered/Resolved]

NARRATIVE: CASE EVENT DATE: 2012
